FAERS Safety Report 7781960-8 (Version None)
Quarter: 2011Q3

REPORT INFORMATION
  Report Type: 
  Country: None (occurrence: None)
  Receive Date: 20110927
  Receipt Date: 20110914
  Transmission Date: 20111222
  Serious: Yes (Other)
  Sender: FDA-Public Use
  Company Number: PHHY2011CO78228

PATIENT
  Age: 46 Year
  Sex: Female

DRUGS (1)
  1. IMATINIB MESYLATE [Suspect]
     Indication: LYMPHOCYTIC LEUKAEMIA
     Dosage: 600 MG, DAILY

REACTIONS (11)
  - PERICARDIAL EFFUSION [None]
  - BLOOD PRESSURE SYSTOLIC INSPIRATORY DECREASED [None]
  - CHEST DISCOMFORT [None]
  - CARDIAC TAMPONADE [None]
  - ATELECTASIS [None]
  - DYSPNOEA EXERTIONAL [None]
  - PLEURAL EFFUSION [None]
  - SEROSITIS [None]
  - TRICUSPID VALVE INCOMPETENCE [None]
  - MITRAL VALVE INCOMPETENCE [None]
  - LUNG INFILTRATION [None]
